FAERS Safety Report 8024535-8 (Version None)
Quarter: 2012Q1

REPORT INFORMATION
  Report Type: 
  Country: None (occurrence: None)
  Receive Date: 20120105
  Receipt Date: 20120103
  Transmission Date: 20120608
  Serious: Yes (Hospitalization, Other)
  Sender: FDA-Public Use
  Company Number: PHEH2005US014205

PATIENT
  Sex: Female
  Weight: 70.295 kg

DRUGS (96)
  1. ARIMIDEX [Suspect]
  2. LOTREL [Concomitant]
     Dosage: 5/10 MG
  3. TAMOXIFEN CITRATE [Concomitant]
     Indication: BREAST CANCER
     Dosage: 10 MG, BID
     Route: 048
     Dates: start: 20020601, end: 20030901
  4. TAXOTERE [Concomitant]
  5. CALCIMATE PLUS [Concomitant]
  6. NEULASTA [Concomitant]
  7. ZEBETA [Concomitant]
     Dosage: UNK
  8. ZOFRAN [Concomitant]
  9. LEVAQUIN [Concomitant]
  10. AZITHROMYCIN [Concomitant]
  11. HYDROCORTISONE WITH LIDOCAINE HYDROCHLORIDE [Concomitant]
  12. EFFEXOR XR [Concomitant]
  13. IODOQUINOL [Concomitant]
  14. ONDANSETRON [Concomitant]
  15. MUPIROCIN [Concomitant]
  16. TERCONAZOLE [Concomitant]
  17. ZOCOR [Concomitant]
  18. MOBIC [Concomitant]
  19. KYTRIL [Concomitant]
  20. ALENDRONATE SODIUM [Suspect]
     Indication: HYPERCALCAEMIA
     Route: 042
  21. ATENOLOL [Concomitant]
     Dosage: 50 MG, QD
     Route: 048
  22. GEMZAR [Concomitant]
     Dosage: UNK
     Dates: start: 20050501
  23. XELODA [Concomitant]
  24. MIRALAX [Concomitant]
     Dosage: UNK
  25. GLYCOLAX [Concomitant]
  26. MORPHINE SULFATE [Concomitant]
  27. CELEBREX [Concomitant]
  28. FASLODEX [Concomitant]
     Dosage: 250 MG, QMO
     Route: 042
     Dates: start: 20040201, end: 20050301
  29. FOSAMAX [Concomitant]
     Dosage: 20 MG, QD
     Route: 048
  30. ZOLOFT [Concomitant]
     Dosage: 50 MG, UNK
  31. PROTONIX [Concomitant]
  32. OXYCODONE HCL AND ACETAMINOPHEN [Concomitant]
  33. SIMVASTATIN [Concomitant]
  34. NAPROXEN [Concomitant]
  35. CEPHALEXIN [Concomitant]
  36. CIALIS [Concomitant]
  37. CLOTRIMAZOLE [Concomitant]
  38. LETROZOLE [Concomitant]
  39. METHYLPREDNISOLONE [Concomitant]
  40. CIPROFLOXACIN [Concomitant]
  41. FEMARA [Concomitant]
     Dosage: 2.5 MG, BID
     Route: 048
     Dates: start: 20030901, end: 20040201
  42. XANAX [Concomitant]
     Dosage: 0.25 MG, UNK
  43. FOLIC ACID [Concomitant]
     Dosage: 1 MG, UNK
  44. PROPOXYPHENE NAPSYLATE W/ ACETAMINOPHEN [Concomitant]
  45. SILVER SULFADIAZINE [Concomitant]
  46. CITALOPRAM HYDROBROMIDE [Concomitant]
  47. MIRTAZAPINE [Concomitant]
  48. WELLBUTRIN XL [Concomitant]
  49. LYRICA [Concomitant]
  50. CHOLINE MAGNESIUM TRISALICYLATE [Concomitant]
  51. AVELOX [Concomitant]
  52. BUPROPION HCL [Concomitant]
  53. FLUCONAZOLE [Concomitant]
  54. BETAMETHASONE DIPROPIONATE W/CLOTRIMAZOLE [Concomitant]
  55. PROZAC [Concomitant]
  56. EVISTA [Concomitant]
  57. HORMONES [Concomitant]
  58. ZOMETA [Suspect]
     Indication: BREAST CANCER METASTATIC
     Dosage: 4 MG, QMO
     Route: 042
     Dates: start: 20030901, end: 20050203
  59. MULTI-VITAMINS [Concomitant]
  60. PROVOCHOLINE [Concomitant]
     Dosage: UNK
  61. COMPAZINE [Concomitant]
  62. POTASSIUM CHLORIDE [Concomitant]
  63. HYDROMORPHONE HYDROCHLORIDE [Concomitant]
  64. MELOXICAM [Concomitant]
  65. MEGESTROL ACETATE [Concomitant]
  66. SULFAMETHOXAZOLE AND TRIMETHOPRIM [Concomitant]
  67. GEMCITABINE [Concomitant]
  68. COMPRO [Concomitant]
  69. IRON [Concomitant]
  70. STOOL SOFTENER [Concomitant]
     Dosage: UNK
  71. NYSTATIN [Concomitant]
  72. ACTONEL [Concomitant]
  73. AROMASIN [Concomitant]
  74. METRONIDAZOLE [Concomitant]
  75. FENTANYL [Concomitant]
  76. LEXAPRO [Concomitant]
  77. PREDNISONE TAB [Concomitant]
  78. LIPITOR [Concomitant]
     Dosage: 40 MG, UNK
  79. HYDROCODONE [Concomitant]
     Dosage: UNK, UNK
  80. ALPRAZOLAM [Concomitant]
  81. OMEPRAZOLE [Concomitant]
  82. NAVELBINE [Concomitant]
  83. ETODOLAC [Concomitant]
  84. TEMAZEPAM [Concomitant]
  85. AMBIEN [Concomitant]
     Dosage: 10 MG, UNK
  86. NEXIUM [Concomitant]
     Dosage: 40 MG, UNK
  87. DEXAMETHASONE [Concomitant]
  88. FUROSEMIDE [Concomitant]
  89. METHADONE HCL [Concomitant]
  90. GABAPENTIN [Concomitant]
  91. METOCLOPRAMIDE [Concomitant]
  92. NEURONTIN [Concomitant]
  93. DOXORUBICIN HCL [Concomitant]
  94. PROCHLORPERAZINE [Concomitant]
  95. BIAFINE [Concomitant]
  96. ZOVIRAX [Concomitant]

REACTIONS (97)
  - OESOPHAGEAL CANDIDIASIS [None]
  - PHYSICAL DISABILITY [None]
  - SCAR [None]
  - TOOTH INFECTION [None]
  - OSTEOARTHRITIS [None]
  - SEROMA [None]
  - POSTURE ABNORMAL [None]
  - AREFLEXIA [None]
  - BACK PAIN [None]
  - URINARY INCONTINENCE [None]
  - CELLULITIS [None]
  - HAND FRACTURE [None]
  - BONE DISORDER [None]
  - IMPAIRED HEALING [None]
  - DYSPNOEA [None]
  - DRY EYE [None]
  - RECTAL FISSURE [None]
  - PROCTALGIA [None]
  - PAIN IN EXTREMITY [None]
  - BRONCHITIS [None]
  - FATIGUE [None]
  - RADICULITIS [None]
  - ERUCTATION [None]
  - EATING DISORDER [None]
  - SPINAL OSTEOARTHRITIS [None]
  - WALKING DISABILITY [None]
  - CYSTOCELE [None]
  - STAPHYLOCOCCAL INFECTION [None]
  - INGROWING NAIL [None]
  - PLANTAR FASCIITIS [None]
  - SEBORRHOEIC KERATOSIS [None]
  - DYSPLASTIC NAEVUS [None]
  - HAEMANGIOMA [None]
  - MAJOR DEPRESSION [None]
  - CATARACT NUCLEAR [None]
  - CHRONIC OBSTRUCTIVE PULMONARY DISEASE [None]
  - TENDON DISORDER [None]
  - RECTAL HAEMORRHAGE [None]
  - NIGHT SWEATS [None]
  - ANXIETY [None]
  - TOOTHACHE [None]
  - WOUND INFECTION STAPHYLOCOCCAL [None]
  - MUSCULAR WEAKNESS [None]
  - INTERVERTEBRAL DISC PROTRUSION [None]
  - ANAEMIA [None]
  - FAECAL INCONTINENCE [None]
  - LICHENOID KERATOSIS [None]
  - HAEMORRHOIDS [None]
  - PYREXIA [None]
  - GINGIVAL PAIN [None]
  - ARTHRALGIA [None]
  - MITRAL VALVE PROLAPSE [None]
  - URINARY RETENTION [None]
  - RECTOCELE [None]
  - MALIGNANT MELANOMA [None]
  - VARICOSE VEIN [None]
  - PERIPHERAL ARTERIAL OCCLUSIVE DISEASE [None]
  - FEAR [None]
  - ORAL DISORDER [None]
  - HYPOAESTHESIA ORAL [None]
  - NEURALGIA [None]
  - NUCLEAR MAGNETIC RESONANCE IMAGING ABNORMAL [None]
  - OEDEMA PERIPHERAL [None]
  - EYE PAIN [None]
  - URINARY TRACT INFECTION [None]
  - EXCESSIVE GRANULATION TISSUE [None]
  - DIZZINESS [None]
  - BALANCE DISORDER [None]
  - COMPRESSION FRACTURE [None]
  - DECREASED APPETITE [None]
  - OSTEONECROSIS OF JAW [None]
  - WHITE BLOOD CELL COUNT INCREASED [None]
  - PAIN [None]
  - EMOTIONAL DISTRESS [None]
  - BONE PAIN [None]
  - LUMBAR RADICULOPATHY [None]
  - MEMORY IMPAIRMENT [None]
  - ANGER [None]
  - BURSITIS [None]
  - ASTHMA [None]
  - TOOTH LOSS [None]
  - OSTEITIS [None]
  - ORAL MUCOSAL EXFOLIATION [None]
  - ORAL CAVITY FISTULA [None]
  - INJURY [None]
  - METASTASES TO BONE [None]
  - EXOSTOSIS [None]
  - PARAESTHESIA [None]
  - HYPOAESTHESIA [None]
  - CONSTIPATION [None]
  - MICTURITION URGENCY [None]
  - RECTAL ABSCESS [None]
  - PURULENT DISCHARGE [None]
  - ECZEMA [None]
  - ANGIOFIBROMA [None]
  - FACE INJURY [None]
  - TINNITUS [None]
